FAERS Safety Report 16137760 (Version 1)
Quarter: 2019Q1

REPORT INFORMATION
  Report Type: Spontaneous
  Country: FR (occurrence: FR)
  Receive Date: 20190330
  Receipt Date: 20190330
  Transmission Date: 20190418
  Serious: Yes (Death)
  Sender: FDA-Public Use
  Company Number: FR-TEVA-2019-FR-1031041

PATIENT
  Age: 47 Year
  Sex: Male
  Weight: 120 kg

DRUGS (5)
  1. SERTRALINE (CHLORHYDRATE DE) [Suspect]
     Active Substance: SERTRALINE HYDROCHLORIDE
     Indication: DEPRESSION
     Dosage: 50 MILLIGRAM DAILY;
     Route: 048
     Dates: end: 20190202
  2. ALIMEMAZINE [Suspect]
     Active Substance: TRIMEPRAZINE
     Indication: INSOMNIA
     Dosage: 20 GTT DAILY;
     Route: 048
     Dates: end: 20190202
  3. DIAZEPAM. [Suspect]
     Active Substance: DIAZEPAM
     Indication: GENERALISED ANXIETY DISORDER
     Dosage: 40 MILLIGRAM DAILY;
     Route: 048
     Dates: end: 20190202
  4. LEVOFLOXACINE [Suspect]
     Active Substance: LEVOFLOXACIN
     Indication: PRODUCT USED FOR UNKNOWN INDICATION
     Dosage: 500 MILLIGRAM DAILY;
     Route: 048
     Dates: end: 20190202
  5. CLOZAPINE. [Suspect]
     Active Substance: CLOZAPINE
     Indication: PRODUCT USED FOR UNKNOWN INDICATION
     Dosage: 100 MILLIGRAM DAILY;
     Route: 048
     Dates: end: 20190202

REACTIONS (2)
  - Cardio-respiratory arrest [Fatal]
  - Anxiety [Fatal]

NARRATIVE: CASE EVENT DATE: 20190123
